FAERS Safety Report 22808068 (Version 3)
Quarter: 2024Q2

REPORT INFORMATION
  Report Type: Spontaneous
  Country: US (occurrence: US)
  Receive Date: 20230810
  Receipt Date: 20240404
  Transmission Date: 20240715
  Serious: No
  Sender: FDA-Public Use
  Company Number: US-SA-SAC20230810000607

PATIENT
  Age: 15 Year
  Sex: Male
  Weight: 62.9 kg

DRUGS (1)
  1. DUPIXENT [Suspect]
     Active Substance: DUPILUMAB
     Indication: Eosinophilic oesophagitis
     Dosage: 300 MG, QW
     Route: 058
     Dates: start: 202306

REACTIONS (8)
  - Nausea [Unknown]
  - Fatigue [Unknown]
  - Pain in extremity [Unknown]
  - Dizziness [Unknown]
  - Limb discomfort [Unknown]
  - Injection site discomfort [Unknown]
  - Injection site pain [Unknown]
  - Intentional product misuse [Unknown]

NARRATIVE: CASE EVENT DATE: 20230101
